FAERS Safety Report 6668292-6 (Version None)
Quarter: 2010Q2

REPORT INFORMATION
  Report Type: 
  Country: None (occurrence: None)
  Receive Date: 20100406
  Receipt Date: 20100324
  Transmission Date: 20101027
  Serious: Yes (Other)
  Sender: FDA-Public Use
  Company Number: JP-PFIZER INC-2010038952

PATIENT

DRUGS (1)
  1. SULFASALAZINE [Suspect]

REACTIONS (2)
  - ANAEMIA MEGALOBLASTIC [None]
  - FOLATE DEFICIENCY [None]
